FAERS Safety Report 4391463-9 (Version None)
Quarter: 2004Q3

REPORT INFORMATION
  Report Type: 
  Country: None (occurrence: None)
  Receive Date: 20040707
  Receipt Date: 20040630
  Transmission Date: 20050211
  Serious: Yes (Other)
  Sender: FDA-Public Use
  Company Number: FR-GLAXOSMITHKLINE-B0337415A

PATIENT
  Age: 57 Year
  Sex: Male
  Weight: 55 kg

DRUGS (2)
  1. ZYBAN [Suspect]
     Dosage: 150MG PER DAY
     Route: 048
     Dates: start: 20040627
  2. INSULIN [Concomitant]

REACTIONS (2)
  - DIABETES MELLITUS INADEQUATE CONTROL [None]
  - HYPOGLYCAEMIA [None]
